FAERS Safety Report 5084329-2 (Version None)
Quarter: 2006Q3

REPORT INFORMATION
  Report Type: 
  Country: None (occurrence: None)
  Receive Date: 20060821
  Receipt Date: 20060808
  Transmission Date: 20061208
  Serious: Yes (Other)
  Sender: FDA-Public Use
  Company Number: PHBS2006JP12069

PATIENT
  Age: 73 Year
  Sex: Female

DRUGS (3)
  1. ZOMETA [Suspect]
     Indication: BONE LESION
     Dosage: 4 MG TWO TIMES EVERY FOUR WEEKS
     Route: 041
     Dates: start: 20060516, end: 20060613
  2. AREDIA [Suspect]
     Dosage: 90 MG
     Route: 065
     Dates: start: 20050601, end: 20060401
  3. AREDIA [Suspect]
     Route: 065
     Dates: start: 20060101

REACTIONS (1)
  - GASTROINTESTINAL ULCER [None]
